FAERS Safety Report 5940502-X (Version None)
Quarter: 2008Q4

REPORT INFORMATION
  Report Type: 
  Country: None (occurrence: None)
  Receive Date: 20081030
  Receipt Date: 20081020
  Transmission Date: 20090506
  Serious: Yes (Hospitalization)
  Sender: FDA-Public Use
  Company Number: 2008BI021622

PATIENT
  Age: 47 Year
  Sex: Male
  Weight: 142 kg

DRUGS (2)
  1. AVONEX [Suspect]
     Indication: RELAPSING-REMITTING MULTIPLE SCLEROSIS
     Dosage: 30 UG;QW;IM
     Dates: start: 20050101, end: 20080821
  2. AVONEX [Suspect]
     Indication: RELAPSING-REMITTING MULTIPLE SCLEROSIS
     Dosage: 30 UG;QW;IM
     Dates: start: 20081007

REACTIONS (6)
  - BLOOD CHOLESTEROL INCREASED [None]
  - CHEST PAIN [None]
  - HYPERGLYCAEMIA [None]
  - MUSCLE SPASMS [None]
  - OEDEMA DUE TO CARDIAC DISEASE [None]
  - RESPIRATORY DISTRESS [None]
